FAERS Safety Report 15737333 (Version 3)
Quarter: 2019Q1

REPORT INFORMATION
  Report Type: Spontaneous
  Country: US (occurrence: US)
  Receive Date: 20181218
  Receipt Date: 20190129
  Transmission Date: 20190417
  Serious: Yes (Hospitalization)
  Sender: FDA-Public Use
  Company Number: US-ASTRAZENECA-2018SF58594

PATIENT
  Age: 21989 Day
  Sex: Female
  Weight: 113.9 kg

DRUGS (11)
  1. AMITRIPTYLINE [Concomitant]
     Active Substance: AMITRIPTYLINE
     Indication: CYSTITIS
     Route: 048
     Dates: start: 1994
  2. MONTELUKAST [Concomitant]
     Active Substance: MONTELUKAST SODIUM
     Indication: ASTHMA
  3. PANTOPRAZOLE [Concomitant]
     Active Substance: PANTOPRAZOLE
     Indication: PROPHYLAXIS
  4. XANAX [Concomitant]
     Active Substance: ALPRAZOLAM
     Indication: PANIC ATTACK
     Dosage: AS NEEDED
  5. BYDUREON BCISE [Suspect]
     Active Substance: EXENATIDE
     Indication: TYPE 2 DIABETES MELLITUS
     Route: 058
     Dates: start: 201810
  6. QUETIAPINE FUMARATE. [Suspect]
     Active Substance: QUETIAPINE FUMARATE
     Route: 048
  7. DILTIAZEM HYDROCHLORIDE. [Concomitant]
     Active Substance: DILTIAZEM HYDROCHLORIDE
     Indication: BLADDER DISORDER
  8. ESCITALOPRAM OXALATE. [Concomitant]
     Active Substance: ESCITALOPRAM OXALATE
     Indication: ANTIDEPRESSANT THERAPY
  9. MONTELUKAST [Concomitant]
     Active Substance: MONTELUKAST SODIUM
     Indication: SINUS DISORDER
  10. VITAMIN D [Concomitant]
     Active Substance: CHOLECALCIFEROL
     Indication: VITAMIN D DEFICIENCY
  11. LORATADINE. [Concomitant]
     Active Substance: LORATADINE
     Indication: HYPERSENSITIVITY

REACTIONS (24)
  - Syncope [Unknown]
  - Nasopharyngitis [Unknown]
  - Paraesthesia [Unknown]
  - Vertigo [Unknown]
  - Malaise [Unknown]
  - Injection site pain [Unknown]
  - Dyskinesia [Unknown]
  - Urinary tract infection [Unknown]
  - Skin disorder [Unknown]
  - Wrong technique in product usage process [Unknown]
  - Body height decreased [Unknown]
  - Injection site mass [Unknown]
  - Chapped lips [Unknown]
  - Injection site bruising [Unknown]
  - Product dose omission [Unknown]
  - Weight increased [Unknown]
  - White blood cell count increased [Unknown]
  - Burning sensation [Unknown]
  - Blood glucose increased [Unknown]
  - Injection site pruritus [Unknown]
  - Device issue [Unknown]
  - Blood pressure decreased [Unknown]
  - Dehydration [Unknown]
  - Off label use [Unknown]

NARRATIVE: CASE EVENT DATE: 20181217
